FAERS Safety Report 5344200-5 (Version None)
Quarter: 2007Q2

REPORT INFORMATION
  Report Type: 
  Country: None (occurrence: None)
  Receive Date: 20070604
  Receipt Date: 20070530
  Transmission Date: 20071010
  Serious: Yes (Other)
  Sender: FDA-Public Use
  Company Number: GB-ROCHE-500204

PATIENT
  Age: 40 Year
  Sex: Female
  Weight: 103.2 kg

DRUGS (1)
  1. XENICAL [Suspect]
     Indication: OBESITY
     Route: 048
     Dates: start: 20070103, end: 20070509

REACTIONS (1)
  - DIABETES MELLITUS [None]
